FAERS Safety Report 25870259 (Version 1)
Quarter: 2025Q4

REPORT INFORMATION
  Report Type: Spontaneous
  Country: US (occurrence: US)
  Receive Date: 20251001
  Receipt Date: 20251001
  Transmission Date: 20260117
  Serious: No
  Sender: RECKITT BENCKISER
  Company Number: US-INDIVIOR US-INDV-157719-2024

PATIENT
  Age: 69 Year
  Sex: Male

DRUGS (3)
  1. BUPRENORPHINE [Suspect]
     Active Substance: BUPRENORPHINE
     Indication: Pain
     Dosage: 2 MILLIGRAM THREE TIMES A DAY/FOUR TIMES A DAY
     Route: 060
  2. BUPRENORPHINE [Suspect]
     Active Substance: BUPRENORPHINE
     Indication: Pain
     Dosage: 8 MILLIGRAM TWICE DAILY/THREE TIMES A DAY
     Route: 060
  3. HYDROMORPHONE [Concomitant]
     Active Substance: HYDROMORPHONE
     Indication: Pain
     Dosage: 1-2 MILLIGRAM, Q4H
     Route: 042

REACTIONS (1)
  - Off label use [Unknown]
